FAERS Safety Report 7862757-7 (Version None)
Quarter: 2011Q4

REPORT INFORMATION
  Report Type: 
  Country: None (occurrence: None)
  Receive Date: 20111027
  Receipt Date: 20101112
  Transmission Date: 20120403
  Serious: No
  Sender: FDA-Public Use
  Company Number: US-AMGEN-KDL204819

PATIENT
  Age: 42 Year
  Sex: Male

DRUGS (2)
  1. ENBREL [Suspect]
     Dosage: 50 MG, QWK
     Route: 058
     Dates: start: 20050101
  2. ENBREL [Suspect]
     Indication: ANKYLOSING SPONDYLITIS
     Dosage: 50 UNK, UNK
     Dates: start: 20050101

REACTIONS (8)
  - PYREXIA [None]
  - GRIP STRENGTH DECREASED [None]
  - BLISTER [None]
  - CHILLS [None]
  - COUGH [None]
  - SKIN INFECTION [None]
  - SINUSITIS [None]
  - DIARRHOEA [None]
